FAERS Safety Report 16473659 (Version 1)
Quarter: 2019Q2

REPORT INFORMATION
  Report Type: Spontaneous
  Country: JP (occurrence: JP)
  Receive Date: 20190625
  Receipt Date: 20190625
  Transmission Date: 20190711
  Serious: Yes (Hospitalization)
  Sender: FDA-Public Use
  Company Number: JP-STRIDES ARCOLAB LIMITED-2019SP005248

PATIENT
  Age: 79 Year
  Sex: Female

DRUGS (3)
  1. MAGNESIUM OXIDE. [Suspect]
     Active Substance: MAGNESIUM OXIDE
     Indication: CONSTIPATION
     Dosage: 3 G/DAY, UNK (POWDER)
     Route: 065
  2. PREDNISOLONE. [Concomitant]
     Active Substance: PREDNISOLONE
     Indication: RHEUMATOID ARTHRITIS
     Dosage: 5 MG/DAY, UNK
     Route: 065
  3. CALCITRIOL. [Suspect]
     Active Substance: CALCITRIOL
     Indication: OSTEOPOROSIS
     Dosage: 0.25 ?G/DAY, UNK
     Route: 065

REACTIONS (7)
  - Oxygen saturation decreased [Unknown]
  - Hypercalcaemia [Recovered/Resolved]
  - Altered state of consciousness [Recovered/Resolved]
  - Hypermagnesaemia [Recovered/Resolved]
  - Respiratory depression [Unknown]
  - Acute kidney injury [Unknown]
  - Stupor [Recovered/Resolved]
